FAERS Safety Report 11031707 (Version 1)
Quarter: 2015Q2

REPORT INFORMATION
  Report Type: Spontaneous
  Country: JP (occurrence: None)
  Receive Date: 20150413
  Receipt Date: 20150413
  Transmission Date: 20150821
  Serious: Yes (Life-Threatening)
  Sender: FDA-Public Use
  Company Number: 2015BCR00080

PATIENT
  Age: 81 Year
  Sex: Female

DRUGS (4)
  1. CALONAL [Concomitant]
     Active Substance: ACETAMINOPHEN
  2. RAPIACTA [Suspect]
     Active Substance: PERAMIVIR
     Indication: INFLUENZA
     Route: 042
     Dates: start: 20150113, end: 20150113
  3. AMLODIPINE OD (AMLODIPINE BESILATE) [Concomitant]
  4. DIOVAN [Concomitant]
     Active Substance: VALSARTAN

REACTIONS (3)
  - Respiratory failure [None]
  - Leukopenia [None]
  - General physical health deterioration [None]

NARRATIVE: CASE EVENT DATE: 20150115
